FAERS Safety Report 9387888 (Version 3)
Quarter: 2013Q3

REPORT INFORMATION
  Report Type: Spontaneous
  Country: US (occurrence: None)
  Receive Date: 20130701
  Receipt Date: 20130807
  Transmission Date: 20140515
  Serious: Yes (Other)
  Sender: FDA-Public Use
  Company Number: 2013P1009992

PATIENT
  Age: 33 Year
  Sex: Female

DRUGS (3)
  1. MYORISAN [Suspect]
     Dates: start: 20130415, end: 20130617
  2. BIRTH CONTROL PILLS [Suspect]
  3. METRONIDAZOLE [Suspect]
     Dosage: UNKNOWN-UNKNOWN

REACTIONS (3)
  - Treatment noncompliance [None]
  - Pregnancy test positive [None]
  - Maternal exposure during pregnancy [None]
